FAERS Safety Report 6788844-2 (Version None)
Quarter: 2010Q2

REPORT INFORMATION
  Report Type: 
  Country: None (occurrence: None)
  Receive Date: 20100623
  Receipt Date: 20080905
  Transmission Date: 20101027
  Serious: No
  Sender: FDA-Public Use
  Company Number: US-PFIZER INC-2008021581

PATIENT
  Sex: Male
  Weight: 68.04 kg

DRUGS (2)
  1. XALATAN [Suspect]
     Indication: INTRAOCULAR PRESSURE INCREASED
     Dates: start: 20060101
  2. LEVOXYL [Concomitant]
     Indication: THYROID DISORDER

REACTIONS (2)
  - EYE IRRITATION [None]
  - EYE PAIN [None]
